FAERS Safety Report 6429895-7 (Version None)
Quarter: 2009Q4

REPORT INFORMATION
  Report Type: 
  Country: None (occurrence: None)
  Receive Date: 20091103
  Receipt Date: 20091025
  Transmission Date: 20100525
  Serious: Yes (Other)
  Sender: FDA-Public Use
  Company Number: 2008-04436

PATIENT
  Age: 63 Year
  Sex: Male
  Weight: 62 kg

DRUGS (3)
  1. VELCADE [Suspect]
     Indication: MULTIPLE MYELOMA
     Dosage: 2.2 MG, UNK, INTRAVENOUS
     Route: 042
     Dates: start: 20080731
  2. DEXAMETHASONE [Concomitant]
  3. ACYCLOVIR [Concomitant]

REACTIONS (2)
  - DISEASE RECURRENCE [None]
  - HEPATITIS B [None]
